FAERS Safety Report 4725523-7 (Version None)
Quarter: 2005Q3

REPORT INFORMATION
  Report Type: 
  Country: None (occurrence: None)
  Receive Date: 20050726
  Receipt Date: 20050726
  Transmission Date: 20060218
  Serious: Yes (Hospitalization)
  Sender: FDA-Public Use
  Company Number: None

PATIENT
  Age: 27 Year
  Sex: Female
  Weight: 91.6 kg

DRUGS (1)
  1. IMMUNE SERUM GLOBULIN (HUMAN) [Suspect]
     Indication: IDIOPATHIC THROMBOCYTOPENIC PURPURA
     Dosage: 90 GM IV
     Route: 042
     Dates: start: 20050610

REACTIONS (2)
  - HEADACHE [None]
  - MENINGITIS ASEPTIC [None]
